FAERS Safety Report 13053810 (Version 1)
Quarter: 2016Q4

REPORT INFORMATION
  Report Type: Report from Study
  Country: US (occurrence: US)
  Receive Date: 20161222
  Receipt Date: 20161222
  Transmission Date: 20170207
  Serious: Yes (Hospitalization, Other)
  Sender: FDA-Public Use
  Company Number: US-AMGEN-USASL2016178770

PATIENT
  Age: 55 Year
  Sex: Female

DRUGS (2)
  1. ENBREL [Suspect]
     Active Substance: ETANERCEPT
     Indication: RHEUMATOID ARTHRITIS
     Dosage: 50 MG, QWK
     Route: 065
     Dates: start: 201609
  2. ISONIAZIDE [Concomitant]
     Active Substance: ISONIAZID
     Indication: LATENT TUBERCULOSIS
     Dosage: UNK
     Dates: start: 2016

REACTIONS (8)
  - Dyspnoea [Unknown]
  - Spinal osteoarthritis [Not Recovered/Not Resolved]
  - Kidney infection [Unknown]
  - Carpal tunnel syndrome [Not Recovered/Not Resolved]
  - Fibromyalgia [Not Recovered/Not Resolved]
  - Amnesia [Not Recovered/Not Resolved]
  - Lung disorder [Unknown]
  - Hypothalamo-pituitary disorder [Not Recovered/Not Resolved]

NARRATIVE: CASE EVENT DATE: 2016
